FAERS Safety Report 21023183 (Version 1)
Quarter: 2022Q2

REPORT INFORMATION
  Report Type: Spontaneous
  Country: US (occurrence: None)
  Receive Date: 20220629
  Receipt Date: 20220629
  Transmission Date: 20220721
  Serious: No
  Sender: FDA-Public Use
  Company Number: 2022A235289

PATIENT
  Sex: Female
  Weight: 121.6 kg

DRUGS (2)
  1. BYDUREON BCISE [Suspect]
     Active Substance: EXENATIDE
     Indication: Weight decreased
     Route: 058
     Dates: start: 2022
  2. BYDUREON BCISE [Suspect]
     Active Substance: EXENATIDE
     Indication: Type 2 diabetes mellitus
     Route: 058
     Dates: start: 2022

REACTIONS (7)
  - Injection site haemorrhage [Unknown]
  - Appetite disorder [Unknown]
  - Weight abnormal [Unknown]
  - Injection site indentation [Unknown]
  - Incorrect dose administered by device [Unknown]
  - Product use issue [Unknown]
  - Device delivery system issue [Unknown]
